FAERS Safety Report 6769268-0 (Version None)
Quarter: 2010Q2

REPORT INFORMATION
  Report Type: 
  Country: None (occurrence: None)
  Receive Date: 20100615
  Receipt Date: 20100607
  Transmission Date: 20101027
  Serious: Yes (Hospitalization, Other)
  Sender: FDA-Public Use
  Company Number: DE-JNJFOC-20100603191

PATIENT
  Age: 67 Year
  Sex: Female

DRUGS (13)
  1. RISPERDAL [Suspect]
     Indication: DRUG USE FOR UNKNOWN INDICATION
     Route: 048
  2. RISPERDAL [Suspect]
     Route: 048
  3. CONCOR [Suspect]
     Indication: DRUG USE FOR UNKNOWN INDICATION
     Route: 048
  4. DELIX [Suspect]
     Indication: DRUG USE FOR UNKNOWN INDICATION
     Route: 048
  5. SPIRONOLACTONE [Suspect]
     Indication: DRUG USE FOR UNKNOWN INDICATION
     Route: 048
  6. LASIX [Suspect]
     Indication: DRUG USE FOR UNKNOWN INDICATION
     Route: 048
  7. MELPERON [Suspect]
     Indication: DRUG USE FOR UNKNOWN INDICATION
     Route: 048
  8. MELPERON [Suspect]
     Route: 048
  9. LORAZEPAM [Suspect]
     Indication: DRUG USE FOR UNKNOWN INDICATION
     Route: 048
  10. LORAZEPAM [Suspect]
     Route: 048
  11. LORAZEPAM [Suspect]
     Route: 048
  12. ASPIRIN [Concomitant]
     Route: 048
  13. SIMVASTATIN [Concomitant]
     Route: 048

REACTIONS (5)
  - COCCYDYNIA [None]
  - CONTUSION [None]
  - DIZZINESS [None]
  - FALL [None]
  - HEMIPARESIS [None]
